FAERS Safety Report 25063987 (Version 2)
Quarter: 2025Q1

REPORT INFORMATION
  Report Type: Report from Study
  Country: DE (occurrence: DE)
  Receive Date: 20250311
  Receipt Date: 20250314
  Transmission Date: 20250408
  Serious: Yes (Other)
  Sender: DAIICHI
  Company Number: DE-ASTRAZENECA-202502GLO024956DE

PATIENT
  Sex: Female

DRUGS (6)
  1. ENHERTU [Suspect]
     Active Substance: FAM-TRASTUZUMAB DERUXTECAN-NXKI
     Indication: Breast cancer
     Route: 042
  2. EYE DROPS [TETRYZOLINE HYDROCHLORIDE] [Concomitant]
     Indication: Adverse event
     Route: 065
  3. CALCIUM CARBONATE\CHOLECALCIFEROL [Concomitant]
     Active Substance: CALCIUM CARBONATE\CHOLECALCIFEROL
     Indication: Adverse event
     Route: 065
  4. AKYNZEO (NETUPITANT\PALONOSETRON HYDROCHLORIDE) [Concomitant]
     Active Substance: NETUPITANT\PALONOSETRON HYDROCHLORIDE
     Indication: Product used for unknown indication
     Route: 065
  5. DEXAMETHASONE SODIUM PHOSPHATE [Concomitant]
     Active Substance: DEXAMETHASONE SODIUM PHOSPHATE
     Indication: Antiinflammatory therapy
     Route: 065
  6. MAGALDRATE [Concomitant]
     Active Substance: MAGALDRATE
     Indication: Adverse event
     Route: 065

REACTIONS (2)
  - Leukopenia [Recovered/Resolved]
  - Leukocytosis [Recovering/Resolving]

NARRATIVE: CASE EVENT DATE: 20250227
